FAERS Safety Report 8022815-3 (Version None)
Quarter: 2012Q1

REPORT INFORMATION
  Report Type: 
  Country: None (occurrence: None)
  Receive Date: 20120104
  Receipt Date: 20111227
  Transmission Date: 20120608
  Serious: Yes (Death, Hospitalization, Other)
  Sender: FDA-Public Use
  Company Number: US-MERCK-1109USA03249

PATIENT
  Age: 47 Year
  Sex: Female

DRUGS (6)
  1. FOSAMAX [Suspect]
     Indication: OSTEOPENIA
     Route: 048
     Dates: start: 19980101, end: 20091001
  2. FOSAMAX [Suspect]
     Indication: OSTEOPOROSIS
     Route: 048
     Dates: start: 19980101, end: 20091001
  3. HYDROXYCHLOROQUINE SULFATE [Concomitant]
     Indication: SYSTEMIC LUPUS ERYTHEMATOSUS
     Route: 065
     Dates: start: 19960101, end: 20090101
  4. PREDNISONE [Concomitant]
     Route: 065
     Dates: start: 19980101
  5. MYCOPHENOLATE MOFETIL (CELLCEPT) [Concomitant]
     Indication: SYSTEMIC LUPUS ERYTHEMATOSUS
     Route: 065
     Dates: start: 19960101, end: 20090101
  6. BONIVA [Suspect]
     Indication: OSTEOPOROSIS
     Route: 042
     Dates: start: 20060101, end: 20090101

REACTIONS (53)
  - ANAEMIA POSTOPERATIVE [None]
  - GASTROINTESTINAL HAEMORRHAGE [None]
  - OESOPHAGEAL DILATATION [None]
  - RESPIRATORY FAILURE [None]
  - HYPOKALAEMIA [None]
  - GASTRIC FISTULA [None]
  - CONTUSION [None]
  - CHOLELITHIASIS [None]
  - OESOPHAGEAL ACHALASIA [None]
  - OESOPHAGEAL PERFORATION [None]
  - SYNCOPE [None]
  - TACHYPNOEA [None]
  - OSTEOARTHRITIS [None]
  - HYPOTHYROIDISM [None]
  - INTESTINAL OBSTRUCTION [None]
  - OXYGEN SATURATION DECREASED [None]
  - RIB FRACTURE [None]
  - HYPOTENSION [None]
  - LARGE INTESTINAL ULCER [None]
  - TACHYCARDIA [None]
  - HYPOXIA [None]
  - FISTULA [None]
  - DIABETES MELLITUS INADEQUATE CONTROL [None]
  - ABDOMINAL HERNIA [None]
  - LOW TURNOVER OSTEOPATHY [None]
  - BACK PAIN [None]
  - CATARACT [None]
  - ANXIETY DISORDER [None]
  - COLONIC POLYP [None]
  - FEMUR FRACTURE [None]
  - INCISIONAL HERNIA [None]
  - INFECTIOUS PERITONITIS [None]
  - DEEP VEIN THROMBOSIS [None]
  - CANDIDURIA [None]
  - ARTHRITIS BACTERIAL [None]
  - HYPERTENSION [None]
  - GASTRIC ULCER [None]
  - DEPRESSION [None]
  - ENTEROCUTANEOUS FISTULA [None]
  - OESOPHAGEAL RUPTURE [None]
  - SHOCK [None]
  - PNEUMOMEDIASTINUM [None]
  - FALL [None]
  - LOCALISED INFECTION [None]
  - ALTERED STATE OF CONSCIOUSNESS [None]
  - STAPHYLOCOCCAL ABSCESS [None]
  - PNEUMOTHORAX [None]
  - IMPAIRED HEALING [None]
  - CELLULITIS [None]
  - CHEST DISCOMFORT [None]
  - ILEUS [None]
  - ARTHROPATHY [None]
  - OSTEOMYELITIS [None]
